FAERS Safety Report 8607218-2 (Version None)
Quarter: 2012Q3

REPORT INFORMATION
  Report Type: 
  Country: None (occurrence: None)
  Receive Date: 20120821
  Receipt Date: 20120809
  Transmission Date: 20120928
  Serious: No
  Sender: FDA-Public Use
  Company Number: 2008BI028759

PATIENT
  Age: 47 Year
  Sex: Female

DRUGS (3)
  1. GILENYA [Concomitant]
     Indication: MULTIPLE SCLEROSIS
  2. TYSABRI [Suspect]
     Indication: MULTIPLE SCLEROSIS
     Route: 042
     Dates: start: 20061005, end: 20080331
  3. TYSABRI [Suspect]
     Route: 042
     Dates: start: 20120627

REACTIONS (9)
  - DRUG SPECIFIC ANTIBODY PRESENT [None]
  - NEUROPATHY PERIPHERAL [None]
  - FATIGUE [None]
  - TREMOR [None]
  - MULTIPLE ALLERGIES [None]
  - BALANCE DISORDER [None]
  - CENTRAL NERVOUS SYSTEM LESION [None]
  - SINUSITIS [None]
  - WHITE BLOOD CELL COUNT DECREASED [None]
